FAERS Safety Report 7584919-9 (Version None)
Quarter: 2011Q2

REPORT INFORMATION
  Report Type: 
  Country: None (occurrence: None)
  Receive Date: 20110630
  Receipt Date: 20091030
  Transmission Date: 20111010
  Serious: Yes (Other)
  Sender: FDA-Public Use
  Company Number: US-BAYER-200920269NA

PATIENT
  Sex: Male

DRUGS (27)
  1. MAGNEVIST [Suspect]
     Indication: PERIPHERAL EMBOLISM
     Dates: start: 20050807, end: 20050807
  2. LOPRESSOR [Concomitant]
     Route: 048
  3. CIPROFLOXACIN HCL [Concomitant]
     Dosage: 500 MG (DAILY DOSE), ,
     Dates: start: 20070101
  4. EPOGEN [Concomitant]
     Dosage: WITH DIALYSIS
     Dates: start: 20050801
  5. PROHANCE [Suspect]
     Indication: NUCLEAR MAGNETIC RESONANCE IMAGING BRAIN
     Dates: start: 19980723, end: 19980723
  6. CALCIFEROL [Concomitant]
     Dosage: UNITS
  7. VANCOMYCIN [Concomitant]
     Dosage: AFTER HD FOR 5 DAYS
     Dates: start: 20070701
  8. PHOSLO [Concomitant]
  9. FERROUS SULFATE TAB [Concomitant]
     Dosage: 65 MG (DAILY DOSE), QD,
  10. VITAMIN B-12 [Concomitant]
     Dosage: 1000 ?G (DAILY DOSE), QD,
  11. RENAGEL [Concomitant]
     Dosage: WITH MEALS
  12. ENOXAPARIN SODIUM [Concomitant]
     Dates: start: 20050601, end: 20050606
  13. HEPARIN [Concomitant]
     Dates: start: 20050603, end: 20080608
  14. ASPIRIN [Concomitant]
     Dosage: 325 MG (DAILY DOSE), QD, ORAL
     Route: 048
  15. ZOLOFT [Concomitant]
     Dosage: 100 MG (DAILY DOSE), QD,
  16. HEPARIN [Concomitant]
     Dosage: DURING CABGX 4 SURGERY.
     Dates: start: 20050606
  17. PROTAMINE SULFATE [Concomitant]
     Dosage: DURING CABG X 4
     Dates: start: 20050606
  18. BUMEX [Concomitant]
     Route: 048
  19. WELLBUTRIN XL [Concomitant]
     Dosage: 150 MG (DAILY DOSE), QD,
     Dates: start: 20050801
  20. ENALAPRIL MALEATE [Concomitant]
     Route: 048
  21. ZOCOR [Concomitant]
     Dosage: 20 MG (DAILY DOSE), QD, ORAL
     Route: 048
  22. METOPROLOL TARTRATE [Concomitant]
     Dosage: 50 MG (DAILY DOSE), QD,
  23. BENICAR [Concomitant]
     Dosage: 20 MG (DAILY DOSE), QD,
  24. PRILOSEC [Concomitant]
     Dosage: 20 MG (DAILY DOSE), QD,
  25. MAGNEVIST [Suspect]
     Indication: NUCLEAR MAGNETIC RESONANCE IMAGING
  26. COREG [Concomitant]
     Route: 048
  27. PLAVIX [Concomitant]
     Dosage: 75 MG (DAILY DOSE), QD,

REACTIONS (1)
  - NEPHROGENIC SYSTEMIC FIBROSIS [None]
